FAERS Safety Report 23692922 (Version 2)
Quarter: 2024Q2

REPORT INFORMATION
  Report Type: Spontaneous
  Country: US (occurrence: US)
  Receive Date: 20240401
  Receipt Date: 20240423
  Transmission Date: 20240716
  Serious: No
  Sender: FDA-Public Use
  Company Number: US-HETERO-HET2024US00848

PATIENT
  Sex: Male

DRUGS (1)
  1. HIGH DENSITY POLYETHYLENE [Suspect]
     Active Substance: HIGH DENSITY POLYETHYLENE
     Indication: Product used for unknown indication
     Dosage: 2 DOSES AT A TIME
     Route: 048

REACTIONS (1)
  - Wrong dose [Unknown]
